FAERS Safety Report 23891758 (Version 4)
Quarter: 2024Q4

REPORT INFORMATION
  Report Type: Spontaneous
  Country: DE (occurrence: DE)
  Receive Date: 20240524
  Receipt Date: 20241014
  Transmission Date: 20250115
  Serious: Yes (Hospitalization)
  Sender: NOVO NORDISK
  Company Number: DE-NOVOPROD-1222956

PATIENT
  Age: 6 Year
  Sex: Female
  Weight: 20 kg

DRUGS (3)
  1. FIASP [Suspect]
     Active Substance: INSULIN ASPART
     Dosage: UNK (INCREASED)
     Route: 058
     Dates: end: 20240508
  2. FIASP [Suspect]
     Active Substance: INSULIN ASPART
     Indication: Type 1 diabetes mellitus
     Dosage: 1.6 ML, QD
     Route: 058
     Dates: start: 20240507
  3. LEVOTHYROXINE SODIUM [Concomitant]
     Active Substance: LEVOTHYROXINE SODIUM
     Indication: Product used for unknown indication
     Dosage: 37.50 ?G, QD

REACTIONS (5)
  - Diabetic ketoacidosis [Recovered/Resolved]
  - Product physical issue [Unknown]
  - Incorrect dose administered by product [Unknown]
  - Gastrointestinal infection [Unknown]
  - Product leakage [Unknown]

NARRATIVE: CASE EVENT DATE: 20240507
